FAERS Safety Report 4915273-6 (Version None)
Quarter: 2006Q1

REPORT INFORMATION
  Report Type: 
  Country: None (occurrence: None)
  Receive Date: 20060216
  Receipt Date: 20060216
  Transmission Date: 20060701
  Serious: Yes (Hospitalization)
  Sender: FDA-Public Use
  Company Number: None

PATIENT
  Sex: Female

DRUGS (2)
  1. CLINDAMYCIN HCL [Suspect]
     Indication: SYSTEMIC ANTIBACTERIAL THERAPY
     Dosage: PO
     Dates: start: 20051103
  2. BENADRYL [Concomitant]

REACTIONS (2)
  - PRURITUS [None]
  - RASH [None]
